FAERS Safety Report 5247687-1 (Version None)
Quarter: 2007Q1

REPORT INFORMATION
  Report Type: 
  Country: None (occurrence: None)
  Receive Date: 20070222
  Receipt Date: 20070209
  Transmission Date: 20070707
  Serious: Yes (Hospitalization)
  Sender: FDA-Public Use
  Company Number: 2007RL000052

PATIENT
  Sex: Male

DRUGS (2)
  1. OMACOR [Suspect]
     Indication: PROPHYLAXIS
     Dosage: PO
     Route: 048
     Dates: start: 20050701
  2. CARDIAC THERAPY [Concomitant]

REACTIONS (2)
  - IMMUNOGLOBULINS INCREASED [None]
  - SKIN DISORDER [None]
